FAERS Safety Report 12757727 (Version 2)
Quarter: 2016Q4

REPORT INFORMATION
  Report Type: Spontaneous
  Country: IT (occurrence: IT)
  Receive Date: 20160919
  Receipt Date: 20161004
  Transmission Date: 20170207
  Serious: Yes (Life-Threatening, Hospitalization)
  Sender: FDA-Public Use
  Company Number: PHHY2016IT128077

PATIENT
  Age: 32 Year
  Sex: Female

DRUGS (4)
  1. ZYPREXA [Suspect]
     Active Substance: OLANZAPINE
     Indication: PRODUCT USED FOR UNKNOWN INDICATION
     Dosage: 8 OT, ONCE/SINGLE
     Route: 048
     Dates: start: 20130507, end: 20130507
  2. TEGRETOL [Suspect]
     Active Substance: CARBAMAZEPINE
     Dosage: 30 OT, ONCE/SINGLE (CONC 400 MG)
     Route: 048
     Dates: start: 20130507, end: 20130507
  3. TEGRETOL [Suspect]
     Active Substance: CARBAMAZEPINE
     Indication: PRODUCT USED FOR UNKNOWN INDICATION
     Dosage: 30 OT, ONCE/SINGLE (CONC 200 MG)
     Route: 048
     Dates: start: 20130507, end: 20130507
  4. AKINETON [Suspect]
     Active Substance: BIPERIDEN HYDROCHLORIDE
     Indication: PRODUCT USED FOR UNKNOWN INDICATION
     Dosage: 30 OT, ONCE/SINGLE
     Route: 048
     Dates: start: 20130507, end: 20130507

REACTIONS (5)
  - Bradykinesia [Recovered/Resolved]
  - Bradyphrenia [Recovered/Resolved]
  - Suicide attempt [Recovered/Resolved]
  - Tremor [Recovered/Resolved]
  - Electrocardiogram QT prolonged [Recovered/Resolved]

NARRATIVE: CASE EVENT DATE: 20130507
